FAERS Safety Report 6085986-4 (Version None)
Quarter: 2009Q1

REPORT INFORMATION
  Report Type: 
  Country: None (occurrence: None)
  Receive Date: 20090218
  Receipt Date: 20090218
  Transmission Date: 20090719
  Serious: Yes (Other)
  Sender: FDA-Public Use
  Company Number: None

PATIENT
  Age: 11 Month
  Sex: Female
  Weight: 6.804 kg

DRUGS (1)
  1. MIRALAX [Suspect]
     Indication: CONSTIPATION
     Dosage: 1 1/2 TSP. DAILY PO
     Route: 048
     Dates: start: 20090204, end: 20090210

REACTIONS (6)
  - ABNORMAL BEHAVIOUR [None]
  - EXCESSIVE EYE BLINKING [None]
  - INSOMNIA [None]
  - IRRITABILITY [None]
  - MUSCLE TWITCHING [None]
  - NERVOUSNESS [None]
